FAERS Safety Report 4851826-1 (Version None)
Quarter: 2005Q4

REPORT INFORMATION
  Report Type: 
  Country: None (occurrence: None)
  Receive Date: 20051209
  Receipt Date: 20051124
  Transmission Date: 20060501
  Serious: Yes (Hospitalization)
  Sender: FDA-Public Use
  Company Number: 12927

PATIENT
  Age: 58 Year
  Sex: Female

DRUGS (5)
  1. CARBOPLATIN [Suspect]
     Indication: MALIGNANT LYMPHOID NEOPLASM
     Dosage: 800 MG PER_CYCLE
     Dates: start: 20050409, end: 20050409
  2. ETOPOSIDE [Suspect]
     Indication: MALIGNANT LYMPHOID NEOPLASM
     Dosage: 100 MG/M2 PER_CYCLE
     Dates: start: 20050408, end: 20050410
  3. MESNA [Suspect]
     Indication: PROPHYLAXIS
     Dates: start: 20050409, end: 20050409
  4. IFOSFAMIDE [Suspect]
     Indication: PROPHYLAXIS
     Dosage: 5 G/M2 PER_CYCLE IV
     Route: 042
     Dates: start: 20050409, end: 20050409
  5. RITUXIMAB [Suspect]
     Indication: MALIGNANT LYMPHOID NEOPLASM
     Dosage: 375 MG PER_CYCLE
     Dates: start: 20050408, end: 20050408

REACTIONS (2)
  - FEBRILE NEUTROPENIA [None]
  - POLLAKIURIA [None]
